FAERS Safety Report 7500527-X (Version None)
Quarter: 2011Q2

REPORT INFORMATION
  Report Type: 
  Country: None (occurrence: None)
  Receive Date: 20110524
  Receipt Date: 20110520
  Transmission Date: 20111010
  Serious: Yes (Other)
  Sender: FDA-Public Use
  Company Number: B0717217A

PATIENT
  Sex: Male

DRUGS (1)
  1. NICOTINE [Suspect]
     Route: 062
     Dates: start: 20110426, end: 20110426

REACTIONS (6)
  - OEDEMA PERIPHERAL [None]
  - VISUAL IMPAIRMENT [None]
  - DIZZINESS [None]
  - PRODUCT QUALITY ISSUE [None]
  - PARAESTHESIA [None]
  - VISION BLURRED [None]
